FAERS Safety Report 12353835 (Version 1)
Quarter: 2016Q2

REPORT INFORMATION
  Report Type: Report from Study
  Country: US (occurrence: US)
  Receive Date: 20160511
  Receipt Date: 20160511
  Transmission Date: 20160815
  Serious: Yes (Other)
  Sender: FDA-Public Use
  Company Number: US-AMGEN-USASP2016057616

PATIENT
  Age: 61 Year
  Sex: Male

DRUGS (1)
  1. ENBREL [Suspect]
     Active Substance: ETANERCEPT
     Indication: PSORIATIC ARTHROPATHY
     Dosage: 50 MG, QWK
     Route: 065
     Dates: start: 20160404

REACTIONS (4)
  - Cellulitis [Unknown]
  - Injection site erythema [Unknown]
  - Injection site papule [Unknown]
  - Injection site warmth [Unknown]

NARRATIVE: CASE EVENT DATE: 201605
